FAERS Safety Report 7768659-9 (Version None)
Quarter: 2011Q3

REPORT INFORMATION
  Report Type: 
  Country: None (occurrence: None)
  Receive Date: 20110922
  Receipt Date: 20110110
  Transmission Date: 20111222
  Serious: No
  Sender: FDA-Public Use
  Company Number: US-ASTRAZENECA-2011SE01798

PATIENT
  Age: 56 Year
  Sex: Male
  Weight: 70.3 kg

DRUGS (6)
  1. CLORACON [Concomitant]
     Indication: HYPOKALAEMIA
  2. SEROQUEL [Suspect]
     Indication: BIPOLAR DISORDER
     Route: 048
  3. AMLODIPINE [Concomitant]
  4. CLONAZIPAM [Concomitant]
  5. PRAVASTATIN SODIUM [Concomitant]
     Indication: HYPERCHOLESTEROLAEMIA
  6. FINIFIBRATE [Concomitant]
     Indication: HYPERCHOLESTEROLAEMIA

REACTIONS (5)
  - INSOMNIA [None]
  - HYPOCHOLESTEROLAEMIA [None]
  - HALLUCINATION, AUDITORY [None]
  - WRONG DRUG ADMINISTERED [None]
  - DRUG DOSE OMISSION [None]
